FAERS Safety Report 7442140-9 (Version None)
Quarter: 2011Q2

REPORT INFORMATION
  Report Type: 
  Country: None (occurrence: None)
  Receive Date: 20110428
  Receipt Date: 20110414
  Transmission Date: 20111010
  Serious: Yes (Other)
  Sender: FDA-Public Use
  Company Number: PHHY2011US28354

PATIENT
  Sex: Male
  Weight: 85.261 kg

DRUGS (6)
  1. MELOXICAM [Concomitant]
     Dosage: UNK
  2. LIPITOR [Concomitant]
  3. AMLODIPINE W/BENAZEPRIL HYDROCHLORIDE [Concomitant]
     Dosage: UNK
  4. VALTURNA [Suspect]
     Indication: HYPERTENSION
     Dosage: 1 DF, 150/160 MG QD
     Route: 048
     Dates: start: 20100301
  5. VALTURNA [Suspect]
     Dosage: 1 DF, 300/320 MG QD
     Route: 048
  6. JANUVIA [Concomitant]
     Dosage: UNK

REACTIONS (2)
  - BLOOD SODIUM DECREASED [None]
  - DIABETIC NEPHROPATHY [None]
